FAERS Safety Report 15381145 (Version 2)
Quarter: 2018Q3

REPORT INFORMATION
  Report Type: Report from Study
  Country: US (occurrence: US)
  Receive Date: 20180913
  Receipt Date: 20180917
  Transmission Date: 20181010
  Serious: Yes (Other)
  Sender: FDA-Public Use
  Company Number: US-GILEAD-2018-0362407

PATIENT
  Age: 46 Year
  Sex: Male

DRUGS (4)
  1. VENTAVIS [Concomitant]
     Active Substance: ILOPROST
     Dosage: UNK
     Dates: end: 20180908
  2. AMBRISENTAN [Suspect]
     Active Substance: AMBRISENTAN
     Indication: PRODUCT USED FOR UNKNOWN INDICATION
     Dosage: 10 MG, QD
     Route: 065
     Dates: start: 20180829
  3. AMLODIPINE [Concomitant]
     Active Substance: AMLODIPINE BESYLATE
  4. SILDENAFIL CITRATE. [Concomitant]
     Active Substance: SILDENAFIL CITRATE

REACTIONS (7)
  - Liver disorder [Unknown]
  - Abdominal pain upper [Unknown]
  - Choking [Unknown]
  - Pain [Unknown]
  - Pain in jaw [Unknown]
  - Vomiting [Unknown]
  - Dizziness [Recovered/Resolved]
